FAERS Safety Report 12989483 (Version 1)
Quarter: 2016Q4

REPORT INFORMATION
  Report Type: Spontaneous
  Country: SE (occurrence: SE)
  Receive Date: 20161201
  Receipt Date: 20161201
  Transmission Date: 20170207
  Serious: Yes (Other)
  Sender: FDA-Public Use
  Company Number: SE-CLINIGEN GROUP PLC/ CLINIGEN HEALTHCARE LTD-E2B_00002556

PATIENT
  Sex: Female

DRUGS (2)
  1. ETHYOL [Suspect]
     Active Substance: AMIFOSTINE
     Indication: ADVERSE DRUG REACTION
     Dosage: 500 MG 1 DAY(S)
     Route: 058
     Dates: start: 20000216, end: 20000216
  2. UNKNOWN [Concomitant]
     Active Substance: UNSPECIFIED INGREDIENT
     Route: 065

REACTIONS (1)
  - Metastases to central nervous system [Unknown]

NARRATIVE: CASE EVENT DATE: 2000
